FAERS Safety Report 11608218 (Version 2)
Quarter: 2015Q4

REPORT INFORMATION
  Report Type: Spontaneous
  Country: SK (occurrence: SK)
  Receive Date: 20151007
  Receipt Date: 20151016
  Transmission Date: 20160304
  Serious: Yes (Death, Other)
  Sender: FDA-Public Use
  Company Number: SK-PFIZER INC-2011104450

PATIENT
  Age: 61 Year
  Sex: Male

DRUGS (1)
  1. SUNITINIB MALATE. [Suspect]
     Active Substance: SUNITINIB MALATE
     Indication: RENAL CELL CARCINOMA
     Dosage: 50 MG, 1X/DAY
     Dates: start: 200611, end: 200705

REACTIONS (9)
  - Death [Fatal]
  - Hypertension [Unknown]
  - Thrombocytopenia [Unknown]
  - Anaemia [Unknown]
  - Diarrhoea [Unknown]
  - Vomiting [Unknown]
  - Fatigue [Unknown]
  - Cardiac failure congestive [Unknown]
  - Nausea [Unknown]

NARRATIVE: CASE EVENT DATE: 201312
